FAERS Safety Report 4804180-5 (Version None)
Quarter: 2005Q4

REPORT INFORMATION
  Report Type: 
  Country: None (occurrence: None)
  Receive Date: 20051018
  Receipt Date: 20051018
  Transmission Date: 20060501
  Serious: No
  Sender: FDA-Public Use
  Company Number: None

PATIENT
  Age: 66 Year
  Sex: Male
  Weight: 64 kg

DRUGS (2)
  1. CUBICIN [Suspect]
     Indication: BACTERAEMIA
     Dosage: 400 -} 500MG IV Q 24 HRS
     Route: 042
     Dates: start: 20050724, end: 20050731
  2. LIPITOR [Concomitant]

REACTIONS (1)
  - BLOOD CREATINE PHOSPHOKINASE INCREASED [None]
